FAERS Safety Report 21025411 (Version 1)
Quarter: 2022Q2

REPORT INFORMATION
  Report Type: Spontaneous
  Country: US (occurrence: US)
  Receive Date: 20220630
  Receipt Date: 20220630
  Transmission Date: 20220721
  Serious: No
  Sender: FDA-Public Use
  Company Number: US-JNJFOC-20220659792

PATIENT

DRUGS (1)
  1. MENS ROGAINE EXTRA STRENGTH [Suspect]
     Active Substance: MINOXIDIL
     Indication: Product used for unknown indication
     Dosage: FOLLOWED EVERY INSTRUCTION ON APPLYING, CARE AND TREATMENT
     Route: 061

REACTIONS (5)
  - Application site scab [Unknown]
  - Application site pain [Unknown]
  - Eye irritation [Unknown]
  - Application site pruritus [Unknown]
  - Alopecia [Unknown]
